FAERS Safety Report 19430796 (Version 1)
Quarter: 2021Q2

REPORT INFORMATION
  Report Type: Spontaneous
  Country: CA (occurrence: CA)
  Receive Date: 20210617
  Receipt Date: 20210617
  Transmission Date: 20210717
  Serious: Yes (Other)
  Sender: FDA-Public Use
  Company Number: CA-PFIZER INC-2021655140

PATIENT
  Age: 22 Year
  Sex: Male

DRUGS (4)
  1. ETOPOSIDE. [Suspect]
     Active Substance: ETOPOSIDE
  2. FRAGMIN [Concomitant]
     Active Substance: DALTEPARIN SODIUM
  3. CISPLATIN. [Suspect]
     Active Substance: CISPLATIN
  4. BLEOMYCIN SULFATE [Suspect]
     Active Substance: BLEOMYCIN SULFATE

REACTIONS (1)
  - Febrile neutropenia [Recovering/Resolving]
